FAERS Safety Report 15749285 (Version 3)
Quarter: 2019Q1

REPORT INFORMATION
  Report Type: Spontaneous
  Country: US (occurrence: US)
  Receive Date: 20181221
  Receipt Date: 20190122
  Transmission Date: 20190417
  Serious: No
  Sender: FDA-Public Use
  Company Number: US-PFIZER INC-2018441322

PATIENT
  Age: 73 Year
  Sex: Female

DRUGS (2)
  1. METOPROLOL TARTRATE. [Suspect]
     Active Substance: METOPROLOL TARTRATE
     Indication: BLOOD PRESSURE ABNORMAL
     Dosage: UNK
  2. XELJANZ [Suspect]
     Active Substance: TOFACITINIB CITRATE
     Indication: RHEUMATOID ARTHRITIS
     Dosage: 5 MG, 2X/DAY (1 TABLET TWICE DAILY)
     Route: 048
     Dates: start: 20180831

REACTIONS (8)
  - Musculoskeletal pain [Unknown]
  - Muscle spasms [Unknown]
  - Tremor [Unknown]
  - Arthralgia [Unknown]
  - Anaemia [Unknown]
  - Diarrhoea [Unknown]
  - Fall [Unknown]
  - Ligament rupture [Unknown]
